FAERS Safety Report 6196030-2 (Version None)
Quarter: 2009Q2

REPORT INFORMATION
  Report Type: 
  Country: None (occurrence: None)
  Receive Date: 20090520
  Receipt Date: 20040916
  Transmission Date: 20091009
  Serious: Yes (Hospitalization)
  Sender: FDA-Public Use
  Company Number: NL-ROCHE-600032

PATIENT
  Sex: Female

DRUGS (8)
  1. CAPECITABINE [Suspect]
     Dosage: DOSE REPORTED AS 2 X 1800 MG
     Route: 048
     Dates: start: 20040823, end: 20040905
  2. IRINOTECAN HCL [Suspect]
     Route: 042
     Dates: start: 20040823
  3. ENALAPRIL [Concomitant]
     Dosage: DOSE REPORTED AS 1 DD 20 MG
  4. COZAAR [Concomitant]
     Dosage: DOSE REPORTED AS 1 DD 50 MG
  5. ASCAL [Concomitant]
     Dosage: DOSE REPORTED AS 1 DD 80 MG
  6. SIMVASTATIN [Concomitant]
     Dosage: DOSE REPORTED AS 1 DD 20 MG
  7. OMEPRAZOLE [Concomitant]
     Dosage: DOSE REPORTED AS 1 DD 20 MG
  8. SOTALOL HYDROCHLORIDE [Concomitant]
     Dosage: DOSE REPORTED AS 2 DD 40 MG

REACTIONS (1)
  - METASTASES TO ABDOMINAL CAVITY [None]
